FAERS Safety Report 18731874 (Version 1)
Quarter: 2021Q1

REPORT INFORMATION
  Report Type: Report from Study
  Country: PK (occurrence: PK)
  Receive Date: 20210112
  Receipt Date: 20210112
  Transmission Date: 20210419
  Serious: Yes (Death)
  Sender: FDA-Public Use
  Company Number: NVSC2021PK005821

PATIENT
  Age: 56 Year
  Sex: Female
  Weight: 56 kg

DRUGS (1)
  1. AFINITOR [Suspect]
     Active Substance: EVEROLIMUS
     Indication: BREAST CANCER METASTATIC
     Dosage: 10 MG, QD
     Route: 048
     Dates: start: 20200930

REACTIONS (4)
  - Dyspnoea [Fatal]
  - Malignant neoplasm progression [Fatal]
  - Pneumonitis [Fatal]
  - Breast cancer metastatic [Fatal]

NARRATIVE: CASE EVENT DATE: 20201027
